FAERS Safety Report 13143875 (Version 1)
Quarter: 2017Q1

REPORT INFORMATION
  Report Type: Spontaneous
  Country: US (occurrence: KR)
  Receive Date: 20170124
  Receipt Date: 20170124
  Transmission Date: 20170428
  Serious: Yes (Hospitalization)
  Sender: FDA-Public Use
  Company Number: US-SA-2017SA009610

PATIENT
  Age: 72 Year
  Sex: Male

DRUGS (17)
  1. PACLITAXEL. [Concomitant]
     Active Substance: PACLITAXEL
     Route: 042
     Dates: start: 20161205, end: 20161205
  2. ELOXATIN [Suspect]
     Active Substance: OXALIPLATIN
     Indication: ADENOCARCINOMA GASTRIC
     Route: 042
     Dates: start: 20151207, end: 20151207
  3. ULTRACET [Concomitant]
     Active Substance: ACETAMINOPHEN\TRAMADOL HYDROCHLORIDE
     Route: 065
     Dates: start: 20151119
  4. AMARYL [Concomitant]
     Active Substance: GLIMEPIRIDE
     Route: 065
     Dates: start: 20151120
  5. ELOXATIN [Suspect]
     Active Substance: OXALIPLATIN
     Indication: ADENOCARCINOMA GASTRIC
     Route: 042
     Dates: start: 20160601, end: 20160601
  6. RAMUCIRUMAB [Concomitant]
     Active Substance: RAMUCIRUMAB
     Route: 042
     Dates: start: 20161205, end: 20161205
  7. HARNAL [Concomitant]
     Active Substance: TAMSULOSIN HYDROCHLORIDE
     Route: 065
     Dates: start: 20151120
  8. HYTRIN [Concomitant]
     Active Substance: TERAZOSIN HYDROCHLORIDE
     Route: 065
     Dates: start: 20051103
  9. XANAX [Concomitant]
     Active Substance: ALPRAZOLAM
     Route: 065
     Dates: start: 20151210
  10. VENTOLIN [Concomitant]
     Active Substance: ALBUTEROL SULFATE
     Route: 065
     Dates: start: 20160610
  11. EFEXOR [Concomitant]
     Active Substance: VENLAFAXINE HYDROCHLORIDE
     Route: 065
     Dates: start: 20160610
  12. OTERACIL POTASSIUM/GIMERACIL/TEGAFUR [Concomitant]
     Indication: ADENOCARCINOMA GASTRIC
     Route: 048
     Dates: start: 20151207, end: 20161117
  13. FERROUS SULFATE. [Concomitant]
     Active Substance: FERROUS SULFATE
     Route: 065
     Dates: start: 20160217
  14. BLINDED THERAPY [Suspect]
     Active Substance: INVESTIGATIONAL PRODUCT
     Indication: ADENOCARCINOMA GASTRIC
     Route: 042
     Dates: start: 20151207, end: 20151207
  15. BLINDED THERAPY [Suspect]
     Active Substance: INVESTIGATIONAL PRODUCT
     Indication: ADENOCARCINOMA GASTRIC
     Route: 042
     Dates: start: 20161110, end: 20161110
  16. TARGIN [Concomitant]
     Active Substance: NALOXONE HYDROCHLORIDE\OXYCODONE HYDROCHLORIDE
     Route: 065
     Dates: start: 20160104
  17. NEURONTIN [Concomitant]
     Active Substance: GABAPENTIN
     Route: 065
     Dates: start: 20160610

REACTIONS (2)
  - Peripheral sensory neuropathy [Unknown]
  - Spinal fracture [Recovered/Resolved with Sequelae]

NARRATIVE: CASE EVENT DATE: 20161216
